FAERS Safety Report 19330506 (Version 1)
Quarter: 2021Q2

REPORT INFORMATION
  Report Type: Spontaneous
  Country: US (occurrence: US)
  Receive Date: 20210528
  Receipt Date: 20210528
  Transmission Date: 20210717
  Serious: Yes (Other)
  Sender: FDA-Public Use
  Company Number: US-ELI_LILLY_AND_COMPANY-US202105009922

PATIENT
  Sex: Female

DRUGS (3)
  1. HUMALOG [Suspect]
     Active Substance: INSULIN LISPRO
     Indication: DIABETES MELLITUS
     Dosage: UNK UNK, PRN (VIA SLIDING SCALE)
     Route: 058
  2. PERCOCET [OXYCODONE HYDROCHLORIDE;OXYCODONE T [Concomitant]
     Active Substance: ACETAMINOPHEN\OXYCODONE HYDROCHLORIDE\OXYCODONE TEREPHTHALATE
     Indication: PRODUCT USED FOR UNKNOWN INDICATION
  3. HUMALOG [Suspect]
     Active Substance: INSULIN LISPRO
     Dosage: UNK UNK, PRN (VIA SLIDING SCALE)
     Route: 058

REACTIONS (8)
  - Arthropathy [Recovering/Resolving]
  - Back pain [Recovering/Resolving]
  - Memory impairment [Recovering/Resolving]
  - Motion sickness [Recovering/Resolving]
  - Eyelid disorder [Recovering/Resolving]
  - Cataract [Recovering/Resolving]
  - Chronic kidney disease [Recovering/Resolving]
  - Mental disorder [Recovering/Resolving]
